FAERS Safety Report 18152477 (Version 8)
Quarter: 2024Q3

REPORT INFORMATION
  Report Type: Report from Study
  Country: US (occurrence: US)
  Receive Date: 20200814
  Receipt Date: 20240710
  Transmission Date: 20241017
  Serious: Yes (Other)
  Sender: TAKEDA
  Company Number: US-SHIRE-US202026010

PATIENT
  Sex: Male

DRUGS (3)
  1. IDURSULFASE [Suspect]
     Active Substance: IDURSULFASE
     Indication: Mucopolysaccharidosis II
     Dosage: UNK UNK, 1/WEEK
     Route: 042
     Dates: start: 20170712, end: 20211105
  2. IDURSULFASE [Suspect]
     Active Substance: IDURSULFASE
     Dosage: UNK UNK, 1/WEEK
     Route: 042
     Dates: start: 20200713
  3. IDURSULFASE [Suspect]
     Active Substance: IDURSULFASE
     Dosage: UNK UNK, 1/WEEK
     Route: 042
     Dates: start: 20210717

REACTIONS (9)
  - Insomnia [Unknown]
  - Intentional self-injury [Unknown]
  - Exposure to SARS-CoV-2 [Unknown]
  - Irritability [Unknown]
  - Anxiety [Unknown]
  - Head injury [Unknown]
  - Haemorrhage [Unknown]
  - Scratch [Unknown]
  - Infection [Recovered/Resolved]
